FAERS Safety Report 8519043-1 (Version None)
Quarter: 2012Q3

REPORT INFORMATION
  Report Type: 
  Country: None (occurrence: None)
  Receive Date: 20120718
  Receipt Date: 20120710
  Transmission Date: 20120928
  Serious: Yes (Hospitalization)
  Sender: FDA-Public Use
  Company Number: PHHY2011FR07447

PATIENT
  Age: 25 Year
  Sex: Female

DRUGS (6)
  1. RIFAMPICIN [Concomitant]
     Indication: PULMONARY TUBERCULOSIS
  2. AZATHIOPRINE [Concomitant]
     Indication: IMMUNOSUPPRESSION
  3. PREDNISOLONE [Concomitant]
     Indication: IMMUNOSUPPRESSION
  4. PYRAZINAMIDE [Suspect]
     Indication: PULMONARY TUBERCULOSIS
  5. ISONIAZID [Concomitant]
     Indication: PULMONARY TUBERCULOSIS
  6. CYCLOSPORINE [Concomitant]
     Indication: IMMUNOSUPPRESSION

REACTIONS (4)
  - ACUTE HEPATIC FAILURE [None]
  - HEPATIC ENCEPHALOPATHY [None]
  - HEPATITIS [None]
  - JAUNDICE [None]
